FAERS Safety Report 8447085-3 (Version None)
Quarter: 2012Q2

REPORT INFORMATION
  Report Type: 
  Country: None (occurrence: None)
  Receive Date: 20120612
  Receipt Date: 20120530
  Transmission Date: 20120825
  Serious: Yes (Hospitalization)
  Sender: FDA-Public Use
  Company Number: GER/GER/11/0018999

PATIENT
  Age: 80 Year
  Sex: Female

DRUGS (3)
  1. ALENDRON BETA EINMAL WOCHENTLICH 70 MG TABLETTEN (ALENDRONIC ACID) [Suspect]
     Indication: OSTEOPOROSIS
     Dosage: 70 MG, 1 IN 1 WK, ORAL
     Route: 048
     Dates: start: 20110301, end: 20110501
  2. ATACAND [Concomitant]
  3. FUROSEMID 1A PHARMA (FUROSEMIDE) [Concomitant]

REACTIONS (5)
  - CARDIAC DISORDER [None]
  - DEEP VEIN THROMBOSIS [None]
  - ARTHRALGIA [None]
  - ABDOMINAL DISTENSION [None]
  - OEDEMA PERIPHERAL [None]
